FAERS Safety Report 8681589 (Version 5)
Quarter: 2013Q3

REPORT INFORMATION
  Report Type: Report from Study
  Country: DE (occurrence: DE)
  Receive Date: 20120725
  Receipt Date: 20130919
  Transmission Date: 20140515
  Serious: Yes (Hospitalization)
  Sender: FDA-Public Use
  Company Number: PHHO2012DE010865

PATIENT
  Sex: 0

DRUGS (7)
  1. BLINDED AFINITOR [Suspect]
     Indication: BREAST CANCER METASTATIC
     Dosage: CODE NOT BROKEN
     Dates: start: 20091210
  2. BLINDED NO TREATMENT RECEIVED [Suspect]
     Indication: BREAST CANCER METASTATIC
     Dosage: CODE NOT BROKEN
     Dates: start: 20091210
  3. BLINDED PLACEBO [Suspect]
     Indication: BREAST CANCER METASTATIC
     Dosage: CODE NOT BROKEN
     Dates: start: 20091210
  4. ZOLEDRONIC ACID [Suspect]
     Indication: BREAST CANCER METASTATIC
     Dosage: 4 MG, QW
     Dates: start: 20091109, end: 20120216
  5. BISPHOSPHONATES [Concomitant]
  6. BELOC [Concomitant]
     Indication: HYPERTENSION
     Dosage: 475 MG, UNK
     Dates: start: 20100114
  7. VITAMIN E [Concomitant]
     Indication: PROPHYLAXIS
     Dosage: 600 MG, UNK

REACTIONS (1)
  - Osteonecrosis of jaw [Recovered/Resolved]
